FAERS Safety Report 14754725 (Version 1)
Quarter: 2018Q2

REPORT INFORMATION
  Report Type: Spontaneous
  Country: DE (occurrence: DE)
  Receive Date: 20180413
  Receipt Date: 20180413
  Transmission Date: 20180711
  Serious: Yes (Other)
  Sender: FDA-Public Use
  Company Number: DE-B.I. PHARMACEUTICALS,INC./RIDGEFIELD-2018-BI-020036

PATIENT
  Age: 78 Year
  Sex: Male

DRUGS (2)
  1. PRAXBIND [Suspect]
     Active Substance: IDARUCIZUMAB
     Indication: CEREBRAL INFARCTION
  2. PRAXBIND [Suspect]
     Active Substance: IDARUCIZUMAB
     Indication: ISCHAEMIC STROKE
     Route: 065

REACTIONS (2)
  - Cerebral infarction [Unknown]
  - Cerebellar infarction [Unknown]
